FAERS Safety Report 20533534 (Version 1)
Quarter: 2022Q1

REPORT INFORMATION
  Report Type: Spontaneous
  Country: US (occurrence: US)
  Receive Date: 20220301
  Receipt Date: 20220301
  Transmission Date: 20220424
  Serious: No
  Sender: FDA-Public Use
  Company Number: US-FRESENIUS KABI-FK202202178

PATIENT
  Age: 49 Year
  Sex: Female
  Weight: 119 kg

DRUGS (2)
  1. BIVALIRUDIN [Suspect]
     Active Substance: BIVALIRUDIN
     Indication: Anticoagulant therapy
     Route: 040
     Dates: start: 20220128, end: 20220128
  2. BIVALIRUDIN [Suspect]
     Active Substance: BIVALIRUDIN
     Route: 041
     Dates: start: 20220128, end: 20220128

REACTIONS (1)
  - Drug ineffective [Recovered/Resolved]

NARRATIVE: CASE EVENT DATE: 20220128
